FAERS Safety Report 18465366 (Version 1)
Quarter: 2020Q4

REPORT INFORMATION
  Report Type: Report from Study
  Country: TW (occurrence: TW)
  Receive Date: 20201104
  Receipt Date: 20201104
  Transmission Date: 20210114
  Serious: Yes (Hospitalization)
  Sender: FDA-Public Use
  Company Number: TW-EXELIXIS-CABO-20034366

PATIENT
  Age: 88 Year
  Sex: Female

DRUGS (1)
  1. CABOMETYX [Suspect]
     Active Substance: CABOZANTINIB S-MALATE
     Indication: HEPATOCELLULAR CARCINOMA
     Dosage: 40 MG 2 DAY ON, 1 DAY OFF
     Route: 048
     Dates: start: 20200710, end: 20200731

REACTIONS (4)
  - Nephrolithiasis [Recovered/Resolved]
  - Alpha 1 foetoprotein increased [Recovered/Resolved]
  - Urinary tract infection [Recovered/Resolved]
  - Inappropriate schedule of product administration [Unknown]

NARRATIVE: CASE EVENT DATE: 20200710
